FAERS Safety Report 5126283-0 (Version None)
Quarter: 2006Q4

REPORT INFORMATION
  Report Type: 
  Country: None (occurrence: None)
  Receive Date: 20061012
  Receipt Date: 20061004
  Transmission Date: 20070319
  Serious: Yes (Life-Threatening, Other)
  Sender: FDA-Public Use
  Company Number: JP-ABBOTT-06P-087-0345978-00

PATIENT
  Sex: Male

DRUGS (14)
  1. KALETRA [Suspect]
     Indication: HIV INFECTION
     Route: 048
     Dates: start: 20040927, end: 20041018
  2. KLACID [Suspect]
     Indication: MYCOBACTERIUM AVIUM COMPLEX INFECTION
     Route: 048
     Dates: start: 20040623
  3. KLACID [Suspect]
     Indication: ANTIBIOTIC PROPHYLAXIS
     Route: 048
     Dates: start: 20040530, end: 20040622
  4. NELFINAVIR [Suspect]
     Indication: HIV INFECTION
     Route: 048
     Dates: start: 20040913, end: 20040926
  5. LAMIVUDINE [Suspect]
     Indication: HIV INFECTION
     Route: 048
     Dates: start: 20040913, end: 20041018
  6. LAMIVUDINE [Suspect]
     Route: 048
     Dates: start: 20050112
  7. STAVUDINE [Suspect]
     Indication: HIV INFECTION
     Route: 048
     Dates: start: 20040913, end: 20041018
  8. STAVUDINE [Suspect]
     Route: 048
     Dates: start: 20050309
  9. LAMIVUDINE + ZIDOVUDINE [Suspect]
     Indication: HIV INFECTION
     Dates: start: 20041019, end: 20050112
  10. EFAVIRENZ [Concomitant]
     Indication: HIV INFECTION
     Route: 048
     Dates: start: 20041019
  11. TENOFOVIR [Concomitant]
     Indication: HIV INFECTION
     Route: 048
     Dates: start: 20050112, end: 20050308
  12. BACTRIM [Concomitant]
     Indication: ANTIBIOTIC PROPHYLAXIS
     Route: 048
     Dates: start: 20040701, end: 20040926
  13. BACTRIM [Concomitant]
     Route: 048
     Dates: start: 20041112
  14. DOXORUBICIN [Concomitant]
     Indication: KAPOSI'S SARCOMA
     Dates: start: 20041204, end: 20050210

REACTIONS (3)
  - ANAEMIA [None]
  - DRUG ERUPTION [None]
  - GLUCOSE TOLERANCE IMPAIRED [None]
